FAERS Safety Report 18702556 (Version 2)
Quarter: 2021Q1

REPORT INFORMATION
  Report Type: Spontaneous
  Country: US (occurrence: US)
  Receive Date: 20210105
  Receipt Date: 20210115
  Transmission Date: 20210419
  Serious: Yes (Other)
  Sender: FDA-Public Use
  Company Number: US-STEMLINE THERAPEUTICS, INC.-2020ST000086

PATIENT
  Age: 80 Year
  Sex: Male

DRUGS (17)
  1. ELZONRIS [Suspect]
     Active Substance: TAGRAXOFUSP-ERZS
     Route: 042
  2. ELZONRIS [Suspect]
     Active Substance: TAGRAXOFUSP-ERZS
     Route: 042
  3. ELZONRIS [Suspect]
     Active Substance: TAGRAXOFUSP-ERZS
     Indication: BLASTIC PLASMACYTOID DENDRITIC CELL NEOPLASIA
     Route: 042
  4. ELZONRIS [Suspect]
     Active Substance: TAGRAXOFUSP-ERZS
     Route: 042
  5. ELZONRIS [Suspect]
     Active Substance: TAGRAXOFUSP-ERZS
     Route: 042
  6. ELZONRIS [Suspect]
     Active Substance: TAGRAXOFUSP-ERZS
     Route: 042
  7. ELZONRIS [Suspect]
     Active Substance: TAGRAXOFUSP-ERZS
     Route: 042
  8. ELZONRIS [Suspect]
     Active Substance: TAGRAXOFUSP-ERZS
     Route: 042
     Dates: start: 20201116, end: 20201120
  9. ELZONRIS [Suspect]
     Active Substance: TAGRAXOFUSP-ERZS
     Route: 042
  10. ELZONRIS [Suspect]
     Active Substance: TAGRAXOFUSP-ERZS
     Route: 042
  11. ELZONRIS [Suspect]
     Active Substance: TAGRAXOFUSP-ERZS
     Route: 042
  12. ELZONRIS [Suspect]
     Active Substance: TAGRAXOFUSP-ERZS
     Route: 042
  13. ELZONRIS [Suspect]
     Active Substance: TAGRAXOFUSP-ERZS
     Route: 042
     Dates: start: 20210104, end: 20210108
  14. ELZONRIS [Suspect]
     Active Substance: TAGRAXOFUSP-ERZS
     Route: 042
  15. ELZONRIS [Suspect]
     Active Substance: TAGRAXOFUSP-ERZS
     Route: 042
  16. ELZONRIS [Suspect]
     Active Substance: TAGRAXOFUSP-ERZS
     Route: 042
  17. ELZONRIS [Suspect]
     Active Substance: TAGRAXOFUSP-ERZS
     Route: 042

REACTIONS (3)
  - Asthenia [Unknown]
  - Cataract operation [Recovered/Resolved]
  - Fatigue [Unknown]

NARRATIVE: CASE EVENT DATE: 2020
